FAERS Safety Report 8271449-4 (Version None)
Quarter: 2012Q2

REPORT INFORMATION
  Report Type: 
  Country: None (occurrence: None)
  Receive Date: 20120410
  Receipt Date: 20120327
  Transmission Date: 20120825
  Serious: Yes (Death, Hospitalization)
  Sender: FDA-Public Use
  Company Number: NL-CELGENEUS-114-21880-12033180

PATIENT
  Sex: Female
  Weight: 70 kg

DRUGS (3)
  1. PREDNISONE [Concomitant]
     Dosage: DOSE REDUCED
     Route: 065
  2. PREDNISONE [Concomitant]
     Route: 065
  3. REVLIMID [Suspect]
     Indication: MULTIPLE MYELOMA
     Dosage: 10 MILLIGRAM
     Route: 048
     Dates: start: 20110916

REACTIONS (2)
  - MULTI-ORGAN FAILURE [None]
  - OEDEMA [None]
